FAERS Safety Report 7552702-6 (Version None)
Quarter: 2011Q2

REPORT INFORMATION
  Report Type: 
  Country: None (occurrence: None)
  Receive Date: 20110616
  Receipt Date: 20110419
  Transmission Date: 20111010
  Serious: No
  Sender: FDA-Public Use
  Company Number: US-ABBOTT-11P-163-0721058-00

PATIENT
  Sex: Female
  Weight: 72.64 kg

DRUGS (2)
  1. UNKNOWN BLOOD PRESSURE MEDICATION [Concomitant]
     Indication: HYPERTENSION
  2. TRILIPIX [Suspect]
     Indication: BLOOD TRIGLYCERIDES INCREASED
     Route: 048
     Dates: start: 20110301, end: 20110401

REACTIONS (3)
  - PAIN IN EXTREMITY [None]
  - MUSCULAR WEAKNESS [None]
  - INCORRECT DRUG ADMINISTRATION DURATION [None]
